FAERS Safety Report 16377228 (Version 1)
Quarter: 2019Q3

REPORT INFORMATION
  Report Type: Spontaneous
  Country: US (occurrence: US)
  Receive Date: 20190530
  Receipt Date: 20190530
  Transmission Date: 20191004
  Serious: No
  Sender: FDA-Public Use
  Company Number: None

PATIENT
  Age: 56 Year
  Sex: Female
  Weight: 111.15 kg

DRUGS (4)
  1. VITAMIN D3 [Concomitant]
     Active Substance: CHOLECALCIFEROL
  2. SIVASTATIN RATIOPHARM 80 MG [Concomitant]
     Active Substance: SIMVASTATIN
  3. BABY ASPIRIN [Concomitant]
     Active Substance: ASPIRIN
  4. DEXTROAMPHET SACCHARAT, AMPHET ASPARTATE, DEXTROAMPHET SULFATE AND AMPHET SULFAT [Suspect]
     Active Substance: AMPHETAMINE ASPARTATE\AMPHETAMINE SULFATE\DEXTROAMPHETAMINE SACCHARATE\DEXTROAMPHETAMINE SULFATE
     Indication: PRODUCT USED FOR UNKNOWN INDICATION
     Dosage: 1 TABLET(S) AM AND AFTERNOON; ORAL
     Route: 048
     Dates: start: 20190501, end: 20190506

REACTIONS (4)
  - Sudden onset of sleep [None]
  - Strabismus [None]
  - Vision blurred [None]
  - Somnolence [None]

NARRATIVE: CASE EVENT DATE: 20190503
